FAERS Safety Report 9241187 (Version 2)
Quarter: 2013Q3

REPORT INFORMATION
  Report Type: Spontaneous
  Country: JP (occurrence: JP)
  Receive Date: 20130419
  Receipt Date: 20130927
  Transmission Date: 20140515
  Serious: Yes (Hospitalization, Other)
  Sender: FDA-Public Use
  Company Number: JP-AMGEN-JPNSP2013025528

PATIENT
  Age: 61 Year
  Sex: Female
  Weight: 56 kg

DRUGS (9)
  1. ENBREL [Suspect]
     Indication: RHEUMATOID ARTHRITIS
     Dosage: 25 MG, WEEKLY
     Route: 058
     Dates: start: 20110705, end: 20130128
  2. RHEUMATREX /00113801/ [Suspect]
     Indication: RHEUMATOID ARTHRITIS
     Dosage: UNK 2-6 MG/WEEK
     Route: 048
     Dates: start: 199609, end: 20100107
  3. RHEUMATREX /00113801/ [Suspect]
     Dosage: 6 MG, WEEKLY
     Route: 048
     Dates: start: 20100108, end: 20130115
  4. MENATETRENONE [Concomitant]
     Dosage: UNK
     Dates: start: 20130228
  5. PREDNISOLONE [Concomitant]
     Indication: RHEUMATOID ARTHRITIS
     Dosage: 5MG/DAY
  6. CALBLOCK [Concomitant]
     Dosage: UNK
  7. FOLIAMIN [Concomitant]
     Dosage: UNK
  8. ALLELOCK [Concomitant]
     Dosage: UNK
  9. TAKEPRON [Concomitant]
     Dosage: UNK
     Dates: start: 20130228

REACTIONS (1)
  - Tubulointerstitial nephritis [Recovering/Resolving]
